FAERS Safety Report 5592376-7 (Version None)
Quarter: 2008Q1

REPORT INFORMATION
  Report Type: 
  Country: None (occurrence: None)
  Receive Date: 20080115
  Receipt Date: 20080110
  Transmission Date: 20080703
  Serious: Yes (Other)
  Sender: FDA-Public Use
  Company Number: US-PFIZER INC-2008003548

PATIENT
  Sex: Male
  Weight: 81.6 kg

DRUGS (4)
  1. ZOLOFT [Suspect]
     Indication: DEPRESSION
  2. ZOLOFT [Suspect]
     Indication: ANXIETY
  3. ZOLOFT [Suspect]
     Indication: DYSTHYMIC DISORDER
  4. ADDERALL 10 [Concomitant]

REACTIONS (3)
  - OPERATIVE HAEMORRHAGE [None]
  - POST PROCEDURAL HAEMATOMA [None]
  - SCROTAL CYST [None]
